FAERS Safety Report 9556879 (Version 1)
Quarter: 2013Q3

REPORT INFORMATION
  Report Type: Spontaneous
  Country: US (occurrence: None)
  Receive Date: 20130726
  Receipt Date: 20130726
  Transmission Date: 20140515
  Serious: Yes (Hospitalization)
  Sender: FDA-Public Use
  Company Number: UTC-025877

PATIENT
  Age: 27 Year
  Sex: Female

DRUGS (2)
  1. REMODULIN [Suspect]
     Dosage: 122.544 UG/KG (0.0851 UG/KG, 1 IN 1 MIN), INTRAVENOUS
     Route: 041
     Dates: start: 20060407
  2. REVATIO (SILENAFIL CITRATE) [Concomitant]

REACTIONS (1)
  - Device related infection [None]
